FAERS Safety Report 6666225-X (Version None)
Quarter: 2010Q2

REPORT INFORMATION
  Report Type: 
  Country: None (occurrence: None)
  Receive Date: 20100402
  Receipt Date: 20100323
  Transmission Date: 20101027
  Serious: Yes (Hospitalization, Other)
  Sender: FDA-Public Use
  Company Number: US-WATSON-2010-03439

PATIENT
  Sex: Female
  Weight: 58.05 kg

DRUGS (2)
  1. CIPROFLOXACIN HCL [Suspect]
     Indication: PROPHYLAXIS
     Dosage: 500 MG, BID
     Route: 048
     Dates: start: 20091107, end: 20091113
  2. CLINDAMYCIN [Suspect]
     Indication: PROPHYLAXIS
     Dosage: 300 MG, Q6H
     Route: 048
     Dates: start: 20091107, end: 20091113

REACTIONS (15)
  - ABDOMINAL DISTENSION [None]
  - ACUTE MYOCARDIAL INFARCTION [None]
  - BLOOD COUNT ABNORMAL [None]
  - CLOSTRIDIAL INFECTION [None]
  - COLITIS [None]
  - DECREASED APPETITE [None]
  - DEHYDRATION [None]
  - DIARRHOEA [None]
  - HYPOKALAEMIA [None]
  - MEGACOLON [None]
  - MUCOSAL INFLAMMATION [None]
  - RENAL FAILURE ACUTE [None]
  - RETCHING [None]
  - SYNCOPE [None]
  - WEIGHT DECREASED [None]
